FAERS Safety Report 4363268-6 (Version None)
Quarter: 2004Q2

REPORT INFORMATION
  Report Type: 
  Country: None (occurrence: None)
  Receive Date: 20040518
  Receipt Date: 20040430
  Transmission Date: 20050107
  Serious: Yes (Other)
  Sender: FDA-Public Use
  Company Number: 206481

PATIENT
  Age: 62 Year
  Sex: Male

DRUGS (3)
  1. RITUXAN (RITUXIMAB) CONC FOR SOLUTION FOR INFUSION [Suspect]
     Dosage: 50 MG, PRN
  2. ACETAMINOPHEN [Concomitant]
  3. DIPHENHYDRAMINE (DIPHENHYDRAMINE NOS) [Concomitant]

REACTIONS (10)
  - ANAPHYLACTIC REACTION [None]
  - CHILLS [None]
  - COUGH [None]
  - DYSPNOEA [None]
  - FLUSHING [None]
  - HYPERTENSION [None]
  - NAUSEA [None]
  - PYREXIA [None]
  - RHINORRHOEA [None]
  - TACHYCARDIA [None]
